FAERS Safety Report 6277493-0 (Version None)
Quarter: 2009Q2

REPORT INFORMATION
  Report Type: 
  Country: None (occurrence: None)
  Receive Date: 20090515
  Receipt Date: 20090515
  Transmission Date: 20091009
  Serious: Yes (Life-Threatening, Hospitalization)
  Sender: FDA-Public Use
  Company Number: None

PATIENT
  Age: 38 Year
  Sex: Female
  Weight: 73.9363 kg

DRUGS (2)
  1. SOTRADECOL [Suspect]
     Indication: VARICOSE VEIN
     Dosage: SEE PHOTOCOPIED DATA
     Dates: start: 20080723
  2. SOTRADECOL .3% AND 5% [Suspect]
     Indication: VARICOSE VEIN
     Dosage: SEE PHOTOCOPIED DATA
     Dates: start: 20080723

REACTIONS (4)
  - AIR EMBOLISM [None]
  - CEREBROVASCULAR ACCIDENT [None]
  - HEMIPARESIS [None]
  - MIGRAINE [None]
